FAERS Safety Report 21191696 (Version 2)
Quarter: 2022Q3

REPORT INFORMATION
  Report Type: Spontaneous
  Country: US (occurrence: None)
  Receive Date: 20220809
  Receipt Date: 20220825
  Transmission Date: 20221027
  Serious: No
  Sender: FDA-Public Use
  Company Number: 2022A249412

PATIENT
  Age: 784 Month
  Sex: Female
  Weight: 74.8 kg

DRUGS (4)
  1. BYDUREON BCISE [Suspect]
     Active Substance: EXENATIDE
     Indication: Type 2 diabetes mellitus
     Route: 058
     Dates: start: 20220703
  2. BYDUREON BCISE [Suspect]
     Active Substance: EXENATIDE
     Indication: Glycosylated haemoglobin
     Route: 058
     Dates: start: 20220703
  3. TIROSINT [Concomitant]
     Active Substance: LEVOTHYROXINE SODIUM
     Indication: Thyroid disorder
     Dates: start: 2019
  4. TRULICITY [Concomitant]
     Active Substance: DULAGLUTIDE

REACTIONS (11)
  - Pain in extremity [Unknown]
  - Administration site pain [Unknown]
  - Abdominal pain upper [Unknown]
  - Headache [Unknown]
  - Injection site erythema [Unknown]
  - Injection site swelling [Unknown]
  - Injection site haematoma [Unknown]
  - Incorrect dose administered [Unknown]
  - Wrong technique in device usage process [Not Recovered/Not Resolved]
  - Device use issue [Unknown]
  - Extra dose administered [Unknown]

NARRATIVE: CASE EVENT DATE: 20220701
